FAERS Safety Report 9279186 (Version 2)
Quarter: 2013Q2

REPORT INFORMATION
  Report Type: Report from Study
  Country: CA (occurrence: CA)
  Receive Date: 20130508
  Receipt Date: 20130531
  Transmission Date: 20140414
  Serious: Yes (Other)
  Sender: FDA-Public Use
  Company Number: CA-ABBOTT-13P-028-1075234-00

PATIENT
  Age: 80 Year
  Sex: Female
  Weight: 59.02 kg

DRUGS (5)
  1. HUMIRA [Suspect]
     Indication: CROHN^S DISEASE
     Route: 058
     Dates: start: 20120822, end: 20130402
  2. HUMIRA [Suspect]
     Dates: start: 20130502
  3. AMLODIPINE [Concomitant]
     Indication: HYPERTENSION
     Route: 048
     Dates: start: 2011
  4. BABY ASPIRIN [Concomitant]
     Indication: VENOUS OCCLUSION
     Dates: start: 2009
  5. VITAMIN D NOS [Concomitant]
     Indication: VITAMIN SUPPLEMENTATION
     Dates: start: 2012

REACTIONS (5)
  - Large intestinal stenosis [Not Recovered/Not Resolved]
  - Intestinal stenosis [Recovered/Resolved]
  - Anxiety [Not Recovered/Not Resolved]
  - Diarrhoea [Not Recovered/Not Resolved]
  - Skin lesion [Unknown]
